FAERS Safety Report 25778032 (Version 1)
Quarter: 2025Q3

REPORT INFORMATION
  Report Type: Spontaneous
  Country: US (occurrence: US)
  Receive Date: 20250909
  Receipt Date: 20250909
  Transmission Date: 20251020
  Serious: No
  Sender: ELI LILLY AND COMPANY
  Company Number: US-ELI_LILLY_AND_COMPANY-US202508024931

PATIENT
  Sex: Female

DRUGS (5)
  1. MOUNJARO [Interacting]
     Active Substance: TIRZEPATIDE
     Indication: Weight control
     Route: 065
  2. MOUNJARO [Interacting]
     Active Substance: TIRZEPATIDE
     Indication: Diabetes mellitus
  3. MAXALT [Interacting]
     Active Substance: RIZATRIPTAN BENZOATE
     Indication: Migraine
     Route: 065
  4. ZOMIG [Interacting]
     Active Substance: ZOLMITRIPTAN
     Indication: Migraine
     Route: 065
  5. ACETAMINOPHEN [Interacting]
     Active Substance: ACETAMINOPHEN
     Indication: Product used for unknown indication
     Route: 065

REACTIONS (2)
  - Drug interaction [Not Recovered/Not Resolved]
  - Impaired gastric emptying [Not Recovered/Not Resolved]
